FAERS Safety Report 4498952-7 (Version None)
Quarter: 2004Q4

REPORT INFORMATION
  Report Type: 
  Country: None (occurrence: None)
  Receive Date: 20041108
  Receipt Date: 20041022
  Transmission Date: 20050328
  Serious: Yes (Hospitalization, Other)
  Sender: FDA-Public Use
  Company Number: 2004240547JP

PATIENT
  Age: 64 Year
  Sex: Male

DRUGS (2)
  1. IDAMYCIN [Suspect]
     Indication: ACUTE MYELOMONOCYTIC LEUKAEMIA
     Dosage: CYCLIC
  2. CYTOSAR-U [Suspect]
     Indication: ACUTE MYELOMONOCYTIC LEUKAEMIA
     Dosage: CYCLIC

REACTIONS (10)
  - CELLULITIS [None]
  - CHROMOSOME ABNORMALITY [None]
  - ENDOCARDITIS [None]
  - ENTEROCOCCAL INFECTION [None]
  - HEART VALVE REPLACEMENT [None]
  - MULTIPLE-DRUG RESISTANCE [None]
  - MYELODYSPLASTIC SYNDROME [None]
  - PANCYTOPENIA [None]
  - PNEUMONIA [None]
  - SEPSIS [None]
